FAERS Safety Report 4956469-7 (Version None)
Quarter: 2006Q1

REPORT INFORMATION
  Report Type: 
  Country: None (occurrence: None)
  Receive Date: 20060328
  Receipt Date: 20060328
  Transmission Date: 20060701
  Serious: Yes (Other)
  Sender: FDA-Public Use
  Company Number: None

PATIENT
  Age: 55 Year
  Sex: Female
  Weight: 104.3273 kg

DRUGS (6)
  1. HYDROXYCHLOROQUINE 200 MG (MYLAN) [Suspect]
     Indication: RHEUMATOID ARTHRITIS
     Dosage: ONE BID
     Dates: start: 20051208
  2. SYNTHROID [Concomitant]
  3. HYDROCODONE BITARTRATE + ACETAMINOPHEN [Concomitant]
  4. DIPHENHYDRAMINE [Concomitant]
  5. LIPITOR [Concomitant]
  6. ESTRADIOL [Concomitant]

REACTIONS (3)
  - CONDITION AGGRAVATED [None]
  - RHEUMATOID ARTHRITIS [None]
  - THERAPEUTIC RESPONSE UNEXPECTED WITH DRUG SUBSTITUTION [None]
